FAERS Safety Report 9381635 (Version 1)
Quarter: 2013Q3

REPORT INFORMATION
  Report Type: Spontaneous
  Country: US (occurrence: US)
  Receive Date: 20130703
  Receipt Date: 20130703
  Transmission Date: 20140515
  Serious: No
  Sender: FDA-Public Use
  Company Number: US-BAYER-2013-081064

PATIENT
  Age: 63 Year
  Sex: Female
  Weight: 88.44 kg

DRUGS (4)
  1. ALEVE CAPLET [Suspect]
     Indication: BACK PAIN
     Dosage: 2 DF, PRN
     Route: 048
     Dates: start: 201107
  2. ATENOLOL [Concomitant]
  3. ARMOUR THYROID [Concomitant]
  4. CLONIDINE [Concomitant]

REACTIONS (1)
  - Drug ineffective [None]
